FAERS Safety Report 6636790-7 (Version None)
Quarter: 2010Q1

REPORT INFORMATION
  Report Type: 
  Country: None (occurrence: None)
  Receive Date: 20100316
  Receipt Date: 20100308
  Transmission Date: 20100710
  Serious: Yes (Death, Other)
  Sender: FDA-Public Use
  Company Number: US-AMGEN-QUU392201

PATIENT
  Sex: Male
  Weight: 78.1 kg

DRUGS (13)
  1. NPLATE [Suspect]
     Indication: IDIOPATHIC THROMBOCYTOPENIC PURPURA
     Route: 058
     Dates: start: 20090717, end: 20091202
  2. RITUXAN [Concomitant]
     Route: 042
     Dates: start: 20091014, end: 20091202
  3. LEXAPRO [Concomitant]
     Route: 048
  4. PROVIGIL [Concomitant]
     Route: 048
  5. DIAZEPAM [Concomitant]
     Route: 048
  6. OXYCODONE HCL AND ACETAMINOPHEN [Concomitant]
     Route: 048
  7. HYDROCHLOROTHIAZIDE [Concomitant]
     Route: 048
  8. NEO-SYNEPHRINE HYDROCHLORIDE [Concomitant]
  9. CALCIUM [Concomitant]
     Route: 048
  10. MAGNESIUM [Concomitant]
  11. ZINC [Concomitant]
  12. UNSPECIFIED VITAMINS [Concomitant]
  13. HYDROCODONE [Concomitant]

REACTIONS (3)
  - DRUG INEFFECTIVE [None]
  - LEUKAEMIA [None]
  - THROMBOCYTOPENIA [None]
